APPROVED DRUG PRODUCT: BENZPHETAMINE HYDROCHLORIDE
Active Ingredient: BENZPHETAMINE HYDROCHLORIDE
Strength: 25MG
Dosage Form/Route: TABLET;ORAL
Application: A040747 | Product #002
Applicant: TEDOR PHARMA INC
Approved: Nov 20, 2015 | RLD: No | RS: No | Type: DISCN